FAERS Safety Report 5114035-7 (Version None)
Quarter: 2006Q3

REPORT INFORMATION
  Report Type: 
  Country: None (occurrence: None)
  Receive Date: 20060925
  Receipt Date: 20060712
  Transmission Date: 20061208
  Serious: Yes (Disabling)
  Sender: FDA-Public Use
  Company Number: US-MERCK-0607USA02419

PATIENT
  Age: 58 Year
  Sex: Male

DRUGS (9)
  1. PEPCID [Suspect]
     Indication: GASTROOESOPHAGEAL REFLUX DISEASE
     Route: 048
  2. INSULIN [Concomitant]
     Route: 065
  3. CARDIZEM [Concomitant]
     Route: 065
  4. LANOXIN [Concomitant]
     Route: 065
  5. FLOMAX [Concomitant]
     Route: 065
  6. LIPITOR [Concomitant]
     Route: 065
  7. COUMADIN [Concomitant]
     Route: 065
  8. VITAMINS (UNSPECIFIED) [Concomitant]
     Route: 065
  9. LASIX [Concomitant]
     Route: 065

REACTIONS (5)
  - DELUSION [None]
  - DRUG LEVEL DECREASED [None]
  - HALLUCINATION [None]
  - PANIC ATTACK [None]
  - PARANOIA [None]
